FAERS Safety Report 19122946 (Version 1)
Quarter: 2021Q2

REPORT INFORMATION
  Report Type: Spontaneous
  Country: AU (occurrence: AU)
  Receive Date: 20210412
  Receipt Date: 20210412
  Transmission Date: 20210717
  Serious: Yes (Other)
  Sender: FDA-Public Use
  Company Number: AU-PFIZER INC-2021385990

PATIENT
  Age: 53 Year
  Sex: Male

DRUGS (3)
  1. SALAZOPYRIN [Suspect]
     Active Substance: SULFASALAZINE
     Indication: RHEUMATOID ARTHRITIS
     Dosage: 1 G, 2X/DAY
  2. SODIUM AUROTHIOMALATE [Suspect]
     Active Substance: GOLD SODIUM THIOMALATE
     Dosage: 50 MG, WEEKLY
  3. NAPROXEN. [Suspect]
     Active Substance: NAPROXEN
     Dosage: 500 MG, 2X/DAY

REACTIONS (2)
  - Deafness [Recovered/Resolved]
  - Tinnitus [Recovered/Resolved]
